FAERS Safety Report 20659735 (Version 1)
Quarter: 2022Q1

REPORT INFORMATION
  Report Type: Spontaneous
  Country: HR (occurrence: HR)
  Receive Date: 20220331
  Receipt Date: 20220331
  Transmission Date: 20220424
  Serious: Yes (Other)
  Sender: FDA-Public Use
  Company Number: HR-MALLINCKRODT-T202201382

PATIENT
  Age: 26 Year
  Sex: Female

DRUGS (12)
  1. UVADEX [Suspect]
     Active Substance: METHOXSALEN
     Indication: Acute graft versus host disease in skin
     Dosage: UNK, THRICE WEEKLY FOR 2 WEEKS (EXTRACORPOREAL)
     Route: 050
  2. UVADEX [Suspect]
     Active Substance: METHOXSALEN
     Indication: Acute graft versus host disease in liver
     Dosage: UNK, TWICE WEEKLY ( EXTRACORPOREAL)
     Route: 050
  3. UVADEX [Suspect]
     Active Substance: METHOXSALEN
     Indication: Acute lymphocytic leukaemia
     Dosage: UNK, ONCE A MONTH (EXTRACORPOREAL)
     Route: 050
  4. UVADEX [Suspect]
     Active Substance: METHOXSALEN
     Dosage: UNK, EVERY 2 WEEKS (EXTRACORPOREAL)
     Route: 050
  5. UVADEX [Suspect]
     Active Substance: METHOXSALEN
     Dosage: UNK, ONCE A MONTH (EXTRACORPOREAL)
     Route: 050
  6. CYCLOSPORINE [Suspect]
     Active Substance: CYCLOSPORINE
     Indication: Acute graft versus host disease in skin
     Dosage: UNK
     Route: 065
  7. CYCLOSPORINE [Suspect]
     Active Substance: CYCLOSPORINE
     Indication: Acute graft versus host disease in liver
     Dosage: UNK,INCREASED
     Route: 065
  8. CYCLOSPORINE [Suspect]
     Active Substance: CYCLOSPORINE
     Dosage: UNK, TAPERED AND STOPPED AT 2 YEARS
     Route: 065
  9. RUXOLITINIB [Concomitant]
     Active Substance: RUXOLITINIB
     Indication: Acute graft versus host disease in skin
     Dosage: UNK
     Route: 065
  10. RUXOLITINIB [Concomitant]
     Active Substance: RUXOLITINIB
     Indication: Acute graft versus host disease in liver
  11. MYCOPHENOLATE MOFETIL [Concomitant]
     Active Substance: MYCOPHENOLATE MOFETIL
     Indication: Acute graft versus host disease in skin
     Dosage: UNK
     Route: 065
  12. MYCOPHENOLATE MOFETIL [Concomitant]
     Active Substance: MYCOPHENOLATE MOFETIL
     Indication: Acute graft versus host disease in liver

REACTIONS (4)
  - Cystitis viral [Unknown]
  - BK virus infection [Unknown]
  - Hepatic enzyme increased [Unknown]
  - Product use in unapproved indication [Unknown]
